FAERS Safety Report 10061738 (Version 2)
Quarter: 2014Q2

REPORT INFORMATION
  Report Type: Spontaneous
  Country: US (occurrence: None)
  Receive Date: 20140403
  Receipt Date: 20140409
  Transmission Date: 20141212
  Serious: Yes (Hospitalization, Other)
  Sender: FDA-Public Use
  Company Number: 2014P1002410

PATIENT
  Age: 15 Year
  Sex: Male
  Weight: 48.54 kg

DRUGS (14)
  1. ACTIMMUNE [Suspect]
     Indication: CHRONIC GRANULOMATOUS DISEASE
     Route: 058
     Dates: start: 201402
  2. BACTRIM [Concomitant]
  3. SPORANOX [Concomitant]
  4. ALBUTEROL [Concomitant]
  5. ALBUTEROL INHALATION 5 MG/ML NEBULIZER SOLUTION [Concomitant]
  6. CYCLOBENZAPRINE 10 MG TABLET [Concomitant]
  7. LACTOBACILLUS RHAMNOSUS [Concomitant]
  8. LISINOPRIL 20 MG TABLET [Concomitant]
  9. MOMETASON NASAL 50 MCG/ACTUATION [Concomitant]
  10. NAPROXEN SODIUM 220 MG TABLET [Concomitant]
  11. AMOXICILLIN/POTASSIUM CLAVULANATE [Concomitant]
  12. ACETAMINOPHEN 325 MG//CODEINE 30 MG [Concomitant]
  13. SULFAMETHOXAZOLE-TRIMETHOPRIM [Concomitant]
  14. ITRACONAZOLE [Concomitant]

REACTIONS (5)
  - Feeling abnormal [None]
  - Bronchiectasis [None]
  - Injection site pain [None]
  - Respiratory tract infection [None]
  - Condition aggravated [None]
